FAERS Safety Report 7313377-4 (Version None)
Quarter: 2011Q1

REPORT INFORMATION
  Report Type: 
  Country: None (occurrence: None)
  Receive Date: 20110225
  Receipt Date: 20101216
  Transmission Date: 20110831
  Serious: No
  Sender: FDA-Public Use
  Company Number: US-MYLANLABS-2010S1023218

PATIENT
  Age: 48 Year
  Sex: Female

DRUGS (4)
  1. METOPROLOL SUCCINATE [Concomitant]
     Indication: BLOOD PRESSURE INCREASED
     Dates: start: 20101101
  2. LORAZEPAM [Concomitant]
  3. HYDROCHLOROTHIAZIDE [Suspect]
     Indication: OEDEMA
     Route: 048
     Dates: start: 20101101, end: 20100101
  4. NIFEDIPINE [Concomitant]
     Indication: BLOOD PRESSURE INCREASED
     Dates: start: 20101101, end: 20100101

REACTIONS (3)
  - NASAL DRYNESS [None]
  - DRY MOUTH [None]
  - DRY EYE [None]
